FAERS Safety Report 15568224 (Version 2)
Quarter: 2018Q4

REPORT INFORMATION
  Report Type: Report from Study
  Country: None (occurrence: ZA)
  Receive Date: 20181030
  Receipt Date: 20181109
  Transmission Date: 20190205
  Serious: Yes (Hospitalization)
  Sender: FDA-Public Use
  Company Number: ZA-ABBVIE-18K-143-2533042-00

PATIENT
  Sex: Female

DRUGS (2)
  1. HUMIRA [Suspect]
     Active Substance: ADALIMUMAB
     Indication: RHEUMATOID ARTHRITIS
     Route: 058
     Dates: start: 2016, end: 20171108
  2. HUMIRA [Suspect]
     Active Substance: ADALIMUMAB
     Route: 058
     Dates: start: 201809, end: 201809

REACTIONS (9)
  - Anaemia [Unknown]
  - Mobility decreased [Not Recovered/Not Resolved]
  - Haematotoxicity [Unknown]
  - Infectious colitis [Unknown]
  - Thrombocytopenia [Unknown]
  - Bone marrow failure [Unknown]
  - Campylobacter colitis [Unknown]
  - Carpal tunnel decompression [Recovering/Resolving]
  - Lichen planus [Unknown]

NARRATIVE: CASE EVENT DATE: 2016
